FAERS Safety Report 24548326 (Version 1)
Quarter: 2024Q4

REPORT INFORMATION
  Report Type: Spontaneous
  Country: US (occurrence: US)
  Receive Date: 20241025
  Receipt Date: 20241025
  Transmission Date: 20250114
  Serious: No
  Sender: XERIS PHARMACEUTICALS
  Company Number: US-BRIAN CONNER SVP QUALITY AND CHIEF COMPLIANCE OFFICER-2024XER00532

PATIENT
  Age: 70 Year
  Sex: Female

DRUGS (4)
  1. RECORLEV [Suspect]
     Active Substance: LEVOKETOCONAZOLE
     Indication: Cushing^s syndrome
     Dosage: 2 TABLETS (300 MG), 1X/DAY
     Dates: start: 20221006
  2. RECORLEV [Suspect]
     Active Substance: LEVOKETOCONAZOLE
     Dosage: 3 TABLETS (450 MG), 1X/DAY
  3. RECORLEV [Suspect]
     Active Substance: LEVOKETOCONAZOLE
     Dosage: 2 TABLETS (300 MG), 1X/DAY
  4. RECORLEV [Suspect]
     Active Substance: LEVOKETOCONAZOLE
     Dosage: 3 TABLETS (450 MG), (2 TABLETS IN THE MORNING, 1 TABLET IN THE EVENING)
     Dates: start: 20240724

REACTIONS (8)
  - Constipation [Recovering/Resolving]
  - Balance disorder [Recovering/Resolving]
  - Tinnitus [Recovering/Resolving]
  - Aphasia [Recovering/Resolving]
  - Pollakiuria [Not Recovered/Not Resolved]
  - Bradykinesia [Not Recovered/Not Resolved]
  - Back pain [Not Recovered/Not Resolved]
  - Vomiting [Not Recovered/Not Resolved]

NARRATIVE: CASE EVENT DATE: 20240901
